FAERS Safety Report 6898027-3 (Version None)
Quarter: 2010Q3

REPORT INFORMATION
  Report Type: 
  Country: None (occurrence: None)
  Receive Date: 20100802
  Receipt Date: 20070820
  Transmission Date: 20110219
  Serious: Yes (Other)
  Sender: FDA-Public Use
  Company Number: US-PFIZER INC-2007068100

PATIENT
  Sex: Female
  Weight: 74.8 kg

DRUGS (3)
  1. LYRICA [Suspect]
     Indication: NERVE INJURY
     Dates: start: 20060601
  2. LYRICA [Suspect]
     Indication: CARTILAGE INJURY
  3. ANTIBIOTICS [Concomitant]

REACTIONS (3)
  - DRUG INEFFECTIVE [None]
  - OEDEMA PERIPHERAL [None]
  - WEIGHT INCREASED [None]
